FAERS Safety Report 8893124 (Version 1)
Quarter: 2012Q4

REPORT INFORMATION
  Report Type: 
  Country: US (occurrence: US)
  Receive Date: 20121107
  Receipt Date: 20121107
  Transmission Date: 20130627
  Serious: No
  Sender: FDA-Public Use
  Company Number: US-AMGEN-USASP2011052530

PATIENT
  Sex: Female
  Weight: 102.4 kg

DRUGS (7)
  1. ENBREL [Suspect]
     Dosage: 25 mg, 2 times/wk
  2. NADOLOL [Concomitant]
     Dosage: 20 mg, UNK
     Route: 048
  3. OMEPRAZOLE [Concomitant]
     Dosage: 20 mg, UNK
     Route: 048
  4. FOLIC ACID [Concomitant]
     Dosage: 1 mg, UNK
     Route: 048
  5. MULTIVITAMINS [Concomitant]
     Route: 048
  6. CALCIUM 600 + D [Concomitant]
  7. SILYBUM MARIANUM [Concomitant]
     Dosage: 500 UNK, UNK
     Route: 048

REACTIONS (1)
  - Therapeutic response decreased [Unknown]
